FAERS Safety Report 11702873 (Version 3)
Quarter: 2015Q4

REPORT INFORMATION
  Report Type: Report from Study
  Country: CA (occurrence: CA)
  Receive Date: 20151105
  Receipt Date: 20151130
  Transmission Date: 20160304
  Serious: Yes (Other)
  Sender: FDA-Public Use
  Company Number: CA-JNJFOC-20151000881

PATIENT
  Age: 60 Year
  Sex: Female

DRUGS (2)
  1. SERAX [Concomitant]
     Active Substance: OXAZEPAM
     Indication: INSOMNIA
     Route: 065
  2. IMBRUVICA [Suspect]
     Active Substance: IBRUTINIB
     Indication: MANTLE CELL LYMPHOMA
     Route: 048
     Dates: start: 20150926

REACTIONS (14)
  - Pulmonary mass [Not Recovered/Not Resolved]
  - Alopecia [Not Recovered/Not Resolved]
  - Insomnia [Not Recovered/Not Resolved]
  - Hypoaesthesia [Not Recovered/Not Resolved]
  - Periarthritis [Not Recovered/Not Resolved]
  - Pain in extremity [Not Recovered/Not Resolved]
  - Abdominal pain [Recovered/Resolved]
  - Diarrhoea [Recovered/Resolved]
  - Neuralgia [Not Recovered/Not Resolved]
  - Haematochezia [Recovered/Resolved]
  - Muscle spasms [Not Recovered/Not Resolved]
  - Constipation [Recovered/Resolved]
  - Contusion [Not Recovered/Not Resolved]
  - Heart rate decreased [Recovered/Resolved]

NARRATIVE: CASE EVENT DATE: 20150926
